FAERS Safety Report 9435437 (Version 2)
Quarter: 2013Q3

REPORT INFORMATION
  Report Type: Spontaneous
  Country: DE (occurrence: None)
  Receive Date: 20130730
  Receipt Date: 20130830
  Transmission Date: 20140515
  Serious: Yes (Death)
  Sender: FDA-Public Use
  Company Number: 1307-911

PATIENT
  Age: 86 Year
  Sex: Female

DRUGS (2)
  1. EYLEA [Suspect]
     Indication: AGE-RELATED MACULAR DEGENERATION
     Route: 031
     Dates: start: 20130606, end: 20130606
  2. WARFARIN (WARFARIN) [Concomitant]

REACTIONS (2)
  - Cerebral infarction [None]
  - Ischaemic stroke [None]
